FAERS Safety Report 23707491 (Version 3)
Quarter: 2024Q2

REPORT INFORMATION
  Report Type: Report from Study
  Country: US (occurrence: US)
  Receive Date: 20240404
  Receipt Date: 20240524
  Transmission Date: 20240715
  Serious: Yes (Other)
  Sender: FDA-Public Use
  Company Number: US-002147023-NVSC2023US258114

PATIENT
  Sex: Female

DRUGS (1)
  1. KESIMPTA [Suspect]
     Active Substance: OFATUMUMAB
     Indication: Product used for unknown indication
     Dosage: 20MG (DAY 0, DAY 8 AND DAY 23)
     Route: 058
     Dates: start: 20231119

REACTIONS (6)
  - Multiple sclerosis [Unknown]
  - Dizziness [Recovering/Resolving]
  - Drug ineffective [Unknown]
  - Visual impairment [Unknown]
  - Feeling hot [Unknown]
  - Off label use [Unknown]
